FAERS Safety Report 8415061-2 (Version None)
Quarter: 2012Q2

REPORT INFORMATION
  Report Type: 
  Country: None (occurrence: None)
  Receive Date: 20120606
  Receipt Date: 20120529
  Transmission Date: 20120825
  Serious: Yes (Other)
  Sender: FDA-Public Use
  Company Number: GB-US-EMD SERONO, INC.-7068157

PATIENT
  Sex: Female
  Weight: 55 kg

DRUGS (2)
  1. REBIF [Suspect]
     Indication: MULTIPLE SCLEROSIS
  2. REBIF [Suspect]
     Dosage: 22 MCGS OF TITRATION
     Route: 058
     Dates: start: 20110531

REACTIONS (13)
  - TEARFULNESS [None]
  - HYPOAESTHESIA [None]
  - OPTIC NEURITIS [None]
  - WEIGHT DECREASED [None]
  - STRESS [None]
  - INFLUENZA LIKE ILLNESS [None]
  - INJECTION SITE HAEMATOMA [None]
  - INJECTION SITE PRURITUS [None]
  - INJECTION SITE PAIN [None]
  - MENTAL DISORDER [None]
  - ANXIETY [None]
  - INJECTION SITE ERYTHEMA [None]
  - FATIGUE [None]
